FAERS Safety Report 7340660-9 (Version None)
Quarter: 2011Q1

REPORT INFORMATION
  Report Type: 
  Country: None (occurrence: None)
  Receive Date: 20110309
  Receipt Date: 20110223
  Transmission Date: 20110831
  Serious: Yes (Other)
  Sender: FDA-Public Use
  Company Number: BR-ROCHE-757923

PATIENT
  Sex: Female

DRUGS (5)
  1. LEVOID [Concomitant]
  2. TOCILIZUMAB [Suspect]
     Route: 042
  3. TOCILIZUMAB [Suspect]
     Dosage: INFUSION
     Route: 042
     Dates: start: 20100101
  4. ATACAND [Concomitant]
  5. GINKGO BILOBA [Concomitant]

REACTIONS (2)
  - GASTRIC DISORDER [None]
  - CATARACT [None]
